FAERS Safety Report 14457105 (Version 2)
Quarter: 2018Q1

REPORT INFORMATION
  Report Type: Spontaneous
  Country: US (occurrence: US)
  Receive Date: 20180130
  Receipt Date: 20180215
  Transmission Date: 20180509
  Serious: Yes (Life-Threatening, Hospitalization, Other)
  Sender: FDA-Public Use
  Company Number: US-AUROBINDO-AUR-APL-2018-003568

PATIENT
  Age: 54 Year
  Sex: Female

DRUGS (6)
  1. ATENOLOL 50 MG [Suspect]
     Active Substance: ATENOLOL
     Indication: SUICIDAL IDEATION
     Dosage: ()
  2. AMLODIPINE 10 MG [Suspect]
     Active Substance: AMLODIPINE BESYLATE
     Indication: PRODUCT USED FOR UNKNOWN INDICATION
     Route: 065
  3. HYDROCHLOROTHIAZIDE 12.5 MG [Suspect]
     Active Substance: HYDROCHLOROTHIAZIDE
     Indication: SUICIDAL IDEATION
     Dosage: ()
  4. HYDROCHLOROTHIAZIDE 12.5 MG [Suspect]
     Active Substance: HYDROCHLOROTHIAZIDE
     Indication: PRODUCT USED FOR UNKNOWN INDICATION
     Route: 065
  5. DOXAZOCIN [Suspect]
     Active Substance: DOXAZOSIN MESYLATE
     Indication: PRODUCT USED FOR UNKNOWN INDICATION
     Route: 065
  6. ATENOLOL 50 MG [Suspect]
     Active Substance: ATENOLOL
     Indication: PRODUCT USED FOR UNKNOWN INDICATION
     Route: 065

REACTIONS (5)
  - Overdose [Recovered/Resolved]
  - Sinus bradycardia [Recovering/Resolving]
  - Abdominal pain [Recovering/Resolving]
  - Somnolence [Recovering/Resolving]
  - Hypotension [Recovering/Resolving]
